FAERS Safety Report 26108666 (Version 1)
Quarter: 2025Q4

REPORT INFORMATION
  Report Type: Report from Study
  Country: None (occurrence: JP)
  Receive Date: 20251201
  Receipt Date: 20251201
  Transmission Date: 20260117
  Serious: Yes (Death)
  Sender: ALNYLAM PHARMACEUTICALS
  Company Number: JP-ALNYLAM PHARMACEUTICALS, INC.-ALN-2025-007594

PATIENT
  Weight: 46 kg

DRUGS (2)
  1. AMVUTTRA [Suspect]
     Active Substance: VUTRISIRAN
     Indication: Hereditary neuropathic amyloidosis
     Dosage: 25 MG, ONCE EVERY 3 MONTHS
  2. AMVUTTRA [Suspect]
     Active Substance: VUTRISIRAN
     Dosage: 25 MG, ONCE EVERY 3 MONTHS

REACTIONS (1)
  - Marasmus [Fatal]
